FAERS Safety Report 23397362 (Version 1)
Quarter: 2024Q1

REPORT INFORMATION
  Report Type: Spontaneous
  Country: US (occurrence: US)
  Receive Date: 20240112
  Receipt Date: 20240112
  Transmission Date: 20240410
  Serious: Yes (Other)
  Sender: FDA-Public Use
  Company Number: US-TEVA- VS-3138640

PATIENT
  Age: 73 Year

DRUGS (1)
  1. ALPRAZOLAM [Suspect]
     Active Substance: ALPRAZOLAM
     Indication: Stress
     Dosage: TIME INTERVAL: 0.33333333 DAYS
     Route: 065
     Dates: start: 1988

REACTIONS (7)
  - Neuropathy peripheral [Unknown]
  - Neuralgia [Unknown]
  - Product use in unapproved indication [Unknown]
  - Pain in extremity [Unknown]
  - Burning sensation [Not Recovered/Not Resolved]
  - Insomnia [Unknown]
  - Eye disorder [Unknown]

NARRATIVE: CASE EVENT DATE: 20230101
